FAERS Safety Report 4704817-5 (Version None)
Quarter: 2005Q3

REPORT INFORMATION
  Report Type: 
  Country: None (occurrence: None)
  Receive Date: 20050701
  Receipt Date: 20040806
  Transmission Date: 20060218
  Serious: No
  Sender: FDA-Public Use
  Company Number: US-GLAXOSMITHKLINE-A0521288A

PATIENT
  Sex: Female

DRUGS (6)
  1. PARNATE [Suspect]
     Indication: DEPRESSION
     Route: 048
  2. ARICEPT [Concomitant]
  3. ATIVAN [Concomitant]
  4. ASPIRIN [Concomitant]
  5. LIPITOR [Concomitant]
  6. REQUIP [Concomitant]

REACTIONS (1)
  - DRUG INEFFECTIVE [None]
